FAERS Safety Report 15117139 (Version 1)
Quarter: 2018Q3

REPORT INFORMATION
  Report Type: Spontaneous
  Country: GB (occurrence: GB)
  Receive Date: 20180706
  Receipt Date: 20180706
  Transmission Date: 20181010
  Serious: Yes (Other)
  Sender: FDA-Public Use
  Company Number: GB-MYLANLABS-2018M1047326

PATIENT
  Age: 41 Year
  Sex: Female
  Weight: 82.55 kg

DRUGS (1)
  1. MIRTAZAPINE. [Suspect]
     Active Substance: MIRTAZAPINE
     Indication: INSOMNIA
     Dosage: 15 MG, UNK
     Route: 048
     Dates: start: 20160710, end: 20161022

REACTIONS (12)
  - Night sweats [Recovered/Resolved]
  - Tachyphrenia [Recovered/Resolved]
  - Nervousness [Recovered/Resolved]
  - Nightmare [Recovered/Resolved]
  - Palpitations [Recovered/Resolved]
  - Anxiety [Recovering/Resolving]
  - Suicidal ideation [Not Recovered/Not Resolved]
  - Hypertension [Unknown]
  - Insomnia [Recovered/Resolved with Sequelae]
  - Emotional distress [Recovered/Resolved with Sequelae]
  - Depersonalisation/derealisation disorder [Recovered/Resolved]
  - Panic attack [Not Recovered/Not Resolved]

NARRATIVE: CASE EVENT DATE: 20161010
